FAERS Safety Report 7324614-4 (Version None)
Quarter: 2011Q1

REPORT INFORMATION
  Report Type: 
  Country: None (occurrence: None)
  Receive Date: 20110218
  Receipt Date: 20110203
  Transmission Date: 20110831
  Serious: Yes (Death, Hospitalization)
  Sender: FDA-Public Use
  Company Number: 2011000736

PATIENT
  Age: 64 Year
  Sex: Male

DRUGS (2)
  1. ERLOTINIB (ERLOTINIB) (TABLET) (ERLOTINIB) [Suspect]
     Indication: PRODUCT USED FOR UNKNOWN INDICATION
     Dosage: MG, ORAL
     Route: 048
     Dates: end: 20101115
  2. BEVACIZUMAB [Suspect]
     Indication: PRODUCT USED FOR UNKNOWN INDICATION
     Dates: end: 20101115

REACTIONS (5)
  - DISEASE PROGRESSION [None]
  - LIVER DISORDER [None]
  - ALANINE AMINOTRANSFERASE INCREASED [None]
  - HYPONATRAEMIA [None]
  - LUNG DISORDER [None]
